FAERS Safety Report 18255092 (Version 2)
Quarter: 2022Q2

REPORT INFORMATION
  Report Type: Spontaneous
  Country: CA (occurrence: CA)
  Receive Date: 20200910
  Receipt Date: 20220509
  Transmission Date: 20220721
  Serious: Yes (Other)
  Sender: FDA-Public Use
  Company Number: CA-NOVARTISPH-NVSC2020CA240607

PATIENT
  Age: 39 Year
  Sex: Male

DRUGS (3)
  1. SANDOSTATIN [Suspect]
     Active Substance: OCTREOTIDE ACETATE
     Indication: Migraine
     Dosage: UNK
     Route: 065
  2. SANDOSTATIN [Suspect]
     Active Substance: OCTREOTIDE ACETATE
  3. SANDOSTATIN [Suspect]
     Active Substance: OCTREOTIDE ACETATE

REACTIONS (7)
  - Drug dependence [Unknown]
  - Insomnia [Unknown]
  - Migraine [Not Recovered/Not Resolved]
  - Blood growth hormone increased [Unknown]
  - Cortisol increased [Unknown]
  - Product use in unapproved indication [Unknown]
  - Headache [Unknown]
